FAERS Safety Report 4988685-2 (Version None)
Quarter: 2006Q2

REPORT INFORMATION
  Report Type: 
  Country: None (occurrence: None)
  Receive Date: 20060502
  Receipt Date: 20060421
  Transmission Date: 20061013
  Serious: Yes (Hospitalization, Other)
  Sender: FDA-Public Use
  Company Number: UY-ABBOTT-06P-168-0331509-00

PATIENT
  Age: 29 Year
  Sex: Female

DRUGS (9)
  1. KALETRA [Suspect]
     Indication: HIV INFECTION
     Route: 048
     Dates: start: 20030101, end: 20050925
  2. KALETRA [Suspect]
     Dates: start: 20060125
  3. ERGOTAMINE [Interacting]
     Indication: MIGRAINE
     Route: 048
     Dates: start: 20050925, end: 20050925
  4. ERGOTAMINE [Interacting]
  5. LAMIVUDINE [Concomitant]
     Indication: HIV INFECTION
     Dates: start: 20030101, end: 20050925
  6. LAMIVUDINE [Concomitant]
     Dates: start: 20060125
  7. ABACAVIR [Concomitant]
     Indication: HIV INFECTION
     Dates: start: 20030101, end: 20050925
  8. ABACAVIR [Concomitant]
     Dates: start: 20060125
  9. ITRACONAZOLE [Concomitant]
     Indication: DRUG USE FOR UNKNOWN INDICATION
     Route: 048

REACTIONS (11)
  - ABASIA [None]
  - ANGIOPATHY [None]
  - CYANOSIS [None]
  - DRUG INTERACTION [None]
  - MIGRAINE [None]
  - OEDEMA PERIPHERAL [None]
  - PAIN IN EXTREMITY [None]
  - PALLOR [None]
  - PERIPHERAL COLDNESS [None]
  - PNEUMOCYSTIS JIROVECI PNEUMONIA [None]
  - RESPIRATORY FAILURE [None]
